FAERS Safety Report 7206355-7 (Version None)
Quarter: 2010Q4

REPORT INFORMATION
  Report Type: 
  Country: None (occurrence: None)
  Receive Date: 20101217
  Receipt Date: 20101202
  Transmission Date: 20110411
  Serious: Yes (Death)
  Sender: FDA-Public Use
  Company Number: 012232

PATIENT
  Age: 74 Year
  Sex: Male
  Weight: 61.2 kg

DRUGS (1)
  1. PLETAL [Suspect]
     Indication: CEREBRAL INFARCTION
     Dosage: 100 MG, BID, ORAL
     Route: 048
     Dates: start: 20050513, end: 20060615

REACTIONS (2)
  - ANGINA PECTORIS [None]
  - PULMONARY HYPERTENSION [None]
